FAERS Safety Report 4998485-5 (Version None)
Quarter: 2006Q2

REPORT INFORMATION
  Report Type: 
  Country: None (occurrence: None)
  Receive Date: 20060508
  Receipt Date: 20060427
  Transmission Date: 20061013
  Serious: Yes (Life-Threatening)
  Sender: FDA-Public Use
  Company Number: 06H-008-0307925-00

PATIENT
  Age: 75 Year
  Sex: Male

DRUGS (6)
  1. BUPIVACAINE INJECTION (BUPIVACAINE HYDROCHLORIDE INJECTION) (BUPIVACAI [Suspect]
     Indication: NERVE BLOCK
     Dosage: INJECTION
  2. LIDOCAINE [Suspect]
     Indication: NERVE BLOCK
     Dosage: INJECTION
  3. MIDAZOLAM HCL [Concomitant]
  4. HYALURONIDASE [Concomitant]
  5. 2000 000 ADRENALINE (EPINEPHRINE) [Concomitant]
  6. ATROPINE [Concomitant]

REACTIONS (6)
  - ANAESTHETIC COMPLICATION NEUROLOGICAL [None]
  - APNOEA [None]
  - DRUG ADMINISTERED AT INAPPROPRIATE SITE [None]
  - LOSS OF CONSCIOUSNESS [None]
  - OPTIC NERVE INJURY [None]
  - WRONG TECHNIQUE IN DRUG USAGE PROCESS [None]
